FAERS Safety Report 22005440 (Version 1)
Quarter: 2023Q1

REPORT INFORMATION
  Report Type: Spontaneous
  Country: US (occurrence: None)
  Receive Date: 20230216
  Receipt Date: 20230216
  Transmission Date: 20230418
  Serious: Yes (Other)
  Sender: FDA-Public Use
  Company Number: None

PATIENT
  Age: 60 Year
  Sex: Female

DRUGS (4)
  1. METHYLCOBALAMIN [Suspect]
     Active Substance: METHYLCOBALAMIN
     Indication: Vitamin B12 deficiency
     Dosage: FREQUENCY : DAILY;?
     Route: 058
     Dates: start: 20230129, end: 20230203
  2. ACYCLOVIR [Concomitant]
     Active Substance: ACYCLOVIR
  3. IBUPROFEN [Concomitant]
     Active Substance: IBUPROFEN
  4. MAGNESIUM SULFATE [Concomitant]
     Active Substance: MAGNESIUM SULFATE

REACTIONS (4)
  - Headache [None]
  - Injection site pain [None]
  - Palpitations [None]
  - Muscle spasms [None]

NARRATIVE: CASE EVENT DATE: 20230203
